FAERS Safety Report 8775338 (Version 1)
Quarter: 2012Q4

REPORT INFORMATION
  Report Type: 
  Country: FR (occurrence: FR)
  Receive Date: 20120910
  Receipt Date: 20120910
  Transmission Date: 20130627
  Serious: Yes (Hospitalization)
  Sender: FDA-Public Use
  Company Number: FR-ABBOTT-12P-056-0977829-00

PATIENT
  Sex: Female

DRUGS (1)
  1. ENANTONE LP 30 MG PREP INJ [Suspect]
     Indication: BREAST CANCER
     Route: 058
     Dates: start: 2010, end: 201202

REACTIONS (1)
  - Eyelid oedema [Unknown]
